FAERS Safety Report 5666896-0 (Version None)
Quarter: 2008Q1

REPORT INFORMATION
  Report Type: 
  Country: None (occurrence: None)
  Receive Date: 20080315
  Receipt Date: 20080104
  Transmission Date: 20080703
  Serious: Yes (Hospitalization)
  Sender: FDA-Public Use
  Company Number: US-ABBOTT-08P-163-0432430-00

PATIENT
  Sex: Female
  Weight: 90 kg

DRUGS (1)
  1. HUMIRA [Suspect]
     Indication: RHEUMATOID ARTHRITIS
     Route: 058
     Dates: start: 20060801, end: 20071119

REACTIONS (4)
  - HEADACHE [None]
  - MENISCUS LESION [None]
  - PYREXIA [None]
  - WHITE BLOOD CELL COUNT INCREASED [None]
